FAERS Safety Report 7444557-5 (Version None)
Quarter: 2011Q2

REPORT INFORMATION
  Report Type: 
  Country: None (occurrence: None)
  Receive Date: 20110429
  Receipt Date: 20110414
  Transmission Date: 20111010
  Serious: Yes (Hospitalization)
  Sender: FDA-Public Use
  Company Number: FR-AMGEN-FRASP2011021079

PATIENT
  Age: 63 Year
  Sex: Female

DRUGS (2)
  1. ENBREL [Suspect]
     Indication: PSORIASIS
     Dosage: 50 MG, WEEKLY
     Route: 058
     Dates: start: 20090401, end: 20101001
  2. LEVOTHYROX [Concomitant]
     Dosage: 75 A?G, UNK
     Dates: start: 19700101

REACTIONS (7)
  - URTICARIA [None]
  - BREAST CANCER [None]
  - OESOPHAGEAL PAIN [None]
  - LATENT TUBERCULOSIS [None]
  - COUGH [None]
  - DYSPHAGIA [None]
  - NAUSEA [None]
